FAERS Safety Report 5227653-2 (Version None)
Quarter: 2007Q1

REPORT INFORMATION
  Report Type: 
  Country: None (occurrence: None)
  Receive Date: 20070202
  Receipt Date: 20061227
  Transmission Date: 20070707
  Serious: Yes (Death)
  Sender: FDA-Public Use
  Company Number: JP-BOEHRINGER INGELHEIM PHARMACEUTICALS, INC.-2006-BP-14301YA

PATIENT
  Age: 86 Year
  Sex: Male

DRUGS (11)
  1. HARNAL (TAMSULOSIN) ORODISPERSABLE CR [Suspect]
     Indication: BENIGN PROSTATIC HYPERPLASIA
     Route: 048
  2. HARNAL (TAMSULOSIN) ORODISPERSABLE CR [Suspect]
  3. VESICARE [Suspect]
     Indication: HYPERTONIC BLADDER
     Route: 048
     Dates: start: 20061026
  4. VESICARE [Suspect]
  5. ATELEC [Concomitant]
  6. BLOPRESS [Concomitant]
  7. BUFFERIN (MAGNESIUM CARBONATE) [Concomitant]
  8. NEUER [Concomitant]
  9. MEXITIL [Concomitant]
  10. ZYRTEC [Concomitant]
  11. ALTAT [Concomitant]
     Route: 065

REACTIONS (2)
  - INJURY ASPHYXIATION [None]
  - VOMITING [None]
